FAERS Safety Report 6316709-9 (Version None)
Quarter: 2009Q3

REPORT INFORMATION
  Report Type: 
  Country: None (occurrence: None)
  Receive Date: 20090820
  Receipt Date: 20090817
  Transmission Date: 20100115
  Serious: Yes (Death)
  Sender: FDA-Public Use
  Company Number: FR-BRISTOL-MYERS SQUIBB COMPANY-14744627

PATIENT
  Age: 64 Year
  Sex: Female

DRUGS (17)
  1. BICNU PWDR FOR INJ [Suspect]
     Route: 042
     Dates: start: 20090421
  2. HOLOXAN [Suspect]
     Dates: start: 20090119, end: 20090318
  3. ETOPOSIDE [Suspect]
     Dates: start: 20090119, end: 20090318
  4. MABTHERA [Suspect]
     Dates: start: 20090119, end: 20090318
  5. MITOXANTRONE [Suspect]
     Dates: start: 20090119, end: 20090318
  6. ARACYTINE [Suspect]
     Dosage: 191 MG TWICE A DAY FROM 22-APR-2009 TO 25-APR-2009
     Dates: start: 20090411, end: 20090425
  7. VEPESID [Suspect]
     Dates: start: 20090422, end: 20090425
  8. ALKERAN [Suspect]
     Dates: start: 20090426
  9. NEORECORMON [Concomitant]
     Dates: start: 20090609
  10. ZELITREX [Concomitant]
     Dosage: 1 DF = 500 UNITS NOT SPECIFIED
     Dates: start: 20090526
  11. XANAX [Concomitant]
     Dosage: 1 DF=0.25UNITS NOT SPECIFIED
  12. ZOLOFT [Concomitant]
     Dosage: 1 DF=50UNITS NOT SPECIFIED
     Dates: start: 20090501
  13. PRIMPERAN [Concomitant]
  14. BICARBONATE [Concomitant]
     Dosage: MOUTHWASH
  15. DIFFU-K [Concomitant]
  16. SPECIAFOLDINE [Concomitant]
  17. AXEPIM [Concomitant]

REACTIONS (1)
  - PANCYTOPENIA [None]
